FAERS Safety Report 9537952 (Version 1)
Quarter: 2013Q3

REPORT INFORMATION
  Report Type: Spontaneous
  Country: FR (occurrence: FR)
  Receive Date: 20130919
  Receipt Date: 20130919
  Transmission Date: 20140515
  Serious: Yes (Other)
  Sender: FDA-Public Use
  Company Number: FR-ACTAVIS-2013-16383

PATIENT
  Age: 26 Year
  Sex: Female

DRUGS (2)
  1. IBUPROFEN [Suspect]
     Indication: TONSILLITIS
     Dosage: 400 MG, TID
     Route: 048
     Dates: start: 20130808, end: 20130809
  2. CEFPODOXIME [Suspect]
     Indication: TONSILLITIS
     Dosage: 100 MG, BID
     Route: 048
     Dates: start: 20130808, end: 20130810

REACTIONS (1)
  - Epistaxis [Recovered/Resolved]
